FAERS Safety Report 11857360 (Version 1)
Quarter: 2015Q4

REPORT INFORMATION
  Report Type: Spontaneous
  Country: US (occurrence: None)
  Receive Date: 20151221
  Receipt Date: 20151221
  Transmission Date: 20160305
  Serious: No
  Sender: FDA-Public Use
  Company Number: None

PATIENT
  Sex: Female
  Weight: 71.67 kg

DRUGS (10)
  1. PACEMAKER [Concomitant]
  2. MULTIVITAMIN [Concomitant]
     Active Substance: VITAMINS
  3. VITAMIN A [Concomitant]
     Active Substance: VITAMIN A
  4. VITAMIN B12 [Concomitant]
     Active Substance: CYANOCOBALAMIN
  5. PROBIOTIC [Concomitant]
     Active Substance: PROBIOTICS NOS
  6. FLOMAX [Suspect]
     Active Substance: TAMSULOSIN HYDROCHLORIDE
     Indication: KLEBSIELLA INFECTION
     Route: 048
     Dates: start: 20151023, end: 20151028
  7. VITAMIN D [Concomitant]
     Active Substance: CHOLECALCIFEROL
  8. FLOMAX [Suspect]
     Active Substance: TAMSULOSIN HYDROCHLORIDE
     Indication: URINARY TRACT INFECTION
     Route: 048
     Dates: start: 20151023, end: 20151028
  9. TRIMETHOPRIM 160MG [Suspect]
     Active Substance: TRIMETHOPRIM
     Dosage: 2 PILLS 100 MG AM/PM TWICE A DAY BY MOUTH
     Route: 048
  10. VITAMIN E [Concomitant]
     Active Substance: .ALPHA.-TOCOPHEROL

REACTIONS (23)
  - Muscular weakness [None]
  - Nasal congestion [None]
  - Arthralgia [None]
  - Puncture site haemorrhage [None]
  - Crying [None]
  - Peripheral swelling [None]
  - Dysstasia [None]
  - Pain in jaw [None]
  - Vision blurred [None]
  - Toothache [None]
  - Chest pain [None]
  - Myalgia [None]
  - Abasia [None]
  - Pain [None]
  - Oropharyngeal pain [None]
  - Palpitations [None]
  - Dyspnoea [None]
  - Peripheral vascular disorder [None]
  - Cardiac disorder [None]
  - Abdominal pain upper [None]
  - Joint stiffness [None]
  - Insomnia [None]
  - Stomatitis [None]
